FAERS Safety Report 4700190-7 (Version None)
Quarter: 2005Q2

REPORT INFORMATION
  Report Type: 
  Country: None (occurrence: None)
  Receive Date: 20050627
  Receipt Date: 20050616
  Transmission Date: 20051028
  Serious: Yes (Other)
  Sender: FDA-Public Use
  Company Number: PHBS2005ES08721

PATIENT
  Sex: Female

DRUGS (1)
  1. OSPOR [Suspect]
     Indication: OSTEOPOROSIS
     Route: 045

REACTIONS (1)
  - MACULAR HOLE [None]
